FAERS Safety Report 10242040 (Version 1)
Quarter: 2014Q2

REPORT INFORMATION
  Report Type: Spontaneous
  Country: US (occurrence: None)
  Receive Date: 20140613
  Receipt Date: 20140613
  Transmission Date: 20141212
  Serious: Yes (Hospitalization)
  Sender: FDA-Public Use
  Company Number: US-H14001-14-00017

PATIENT
  Age: 68 Year
  Sex: Female

DRUGS (9)
  1. CIPROFLOXACIN (CIPROFLOXACIN) (UNKNOWN) (CIPROFLOXACIN) [Suspect]
     Indication: URINARY TRACT INFECTION
     Dosage: (500 MG, 2 IN 1 D)
     Dates: start: 2008
  2. DILTIAZEM [Concomitant]
  3. WARFARIN (WARFARIN) [Concomitant]
  4. ATORVASTATIN [Concomitant]
  5. ESOMEPRAZOLE [Concomitant]
  6. LOSARTAN [Concomitant]
  7. HYDROCHLOROTHIAZIDE [Concomitant]
  8. SOTALOL [Concomitant]
  9. AMOXICILIN/CLAVUNALATE (AMOXICILINA + CLAVULANICO) (UNKNOWN) (CLAVULANIC ACID, AMOXICILLIN TRIHYDRATE) [Concomitant]

REACTIONS (4)
  - Fatigue [None]
  - Nausea [None]
  - Vomiting [None]
  - Inappropriate antidiuretic hormone secretion [None]
